FAERS Safety Report 11842484 (Version 1)
Quarter: 2015Q4

REPORT INFORMATION
  Report Type: Spontaneous
  Country: US (occurrence: None)
  Receive Date: 20151216
  Receipt Date: 20151216
  Transmission Date: 20160305
  Serious: No
  Sender: FDA-Public Use
  Company Number: None

PATIENT
  Age: 35 Year
  Sex: Male
  Weight: 77.11 kg

DRUGS (1)
  1. OLANZAPINE TABLETS 15 MG PRASCO [Suspect]
     Active Substance: OLANZAPINE
     Dosage: 1 PILL
     Route: 048
     Dates: start: 20150205, end: 20151215

REACTIONS (2)
  - Muscular weakness [None]
  - Fatigue [None]

NARRATIVE: CASE EVENT DATE: 20151215
